FAERS Safety Report 8118890-8 (Version None)
Quarter: 2012Q1

REPORT INFORMATION
  Report Type: 
  Country: None (occurrence: None)
  Receive Date: 20120202
  Receipt Date: 20120120
  Transmission Date: 20120608
  Serious: Yes (Hospitalization)
  Sender: FDA-Public Use
  Company Number: 2012MA000870

PATIENT
  Age: 65 Year
  Sex: Male

DRUGS (12)
  1. GLIBENKLAMID RECIP [Concomitant]
  2. VINORELBINE [Suspect]
     Indication: LUNG NEOPLASM MALIGNANT
     Dosage: 50MG;;IV
     Route: 042
     Dates: start: 20111102, end: 20111123
  3. TURBUHALER [Concomitant]
  4. METOPROLOL SUCCINATE [Concomitant]
  5. ASPIRIN [Concomitant]
  6. CISPLATIN [Suspect]
     Indication: LUNG NEOPLASM MALIGNANT
     Dosage: 170 MG;;IV
     Route: 042
     Dates: start: 20111102, end: 20111123
  7. BRICANYL [Concomitant]
  8. PULMICORT-100 [Concomitant]
  9. METFORMIN HCL [Concomitant]
  10. PRIMPERAN TAB [Concomitant]
  11. OMEPRAZOLE [Concomitant]
  12. TURBUHALER [Concomitant]

REACTIONS (6)
  - ORAL CANDIDIASIS [None]
  - NEPHROPATHY TOXIC [None]
  - RENAL FAILURE ACUTE [None]
  - HAEMOGLOBIN DECREASED [None]
  - FATIGUE [None]
  - DIZZINESS [None]
